FAERS Safety Report 25677670 (Version 1)
Quarter: 2025Q3

REPORT INFORMATION
  Report Type: Spontaneous
  Country: TW (occurrence: TW)
  Receive Date: 20250813
  Receipt Date: 20250813
  Transmission Date: 20251020
  Serious: Yes (Life-Threatening, Hospitalization, Other)
  Sender: PFIZER
  Company Number: TW-PFIZER INC-PV202500095877

PATIENT
  Age: 75 Year
  Sex: Male
  Weight: 62.3 kg

DRUGS (26)
  1. VFEND [Suspect]
     Active Substance: VORICONAZOLE
     Indication: Antifungal treatment
     Route: 041
     Dates: start: 20250610, end: 20250610
  2. VFEND [Suspect]
     Active Substance: VORICONAZOLE
     Indication: Sinusitis fungal
     Dosage: ONCE EVERY 12.0 HOURS
     Route: 041
     Dates: start: 20250611, end: 20250616
  3. VFEND [Suspect]
     Active Substance: VORICONAZOLE
     Indication: Encephalitis
  4. VFEND [Suspect]
     Active Substance: VORICONAZOLE
     Indication: Antifungal treatment
     Route: 048
  5. VFEND [Suspect]
     Active Substance: VORICONAZOLE
     Indication: Sinusitis fungal
     Dosage: 250 MG, 2X/DAY
     Route: 048
  6. VFEND [Suspect]
     Active Substance: VORICONAZOLE
     Indication: Encephalitis
     Dosage: 250 MG, 2X/DAY
     Route: 048
     Dates: end: 20250621
  7. ACETAL [Concomitant]
     Indication: Pain
     Dosage: ONCE EVERY 0.25 DAY
     Route: 048
     Dates: start: 20250611, end: 20250625
  8. ACTRAPID [Concomitant]
     Active Substance: INSULIN HUMAN
     Indication: Diabetes mellitus
     Route: 058
     Dates: start: 20250611, end: 20250617
  9. MIDATIN [Concomitant]
     Indication: Endotracheal intubation
     Route: 041
     Dates: start: 20250611, end: 20250611
  10. ROCURONIUM BROMIDE [Concomitant]
     Active Substance: ROCURONIUM BROMIDE
     Indication: Endotracheal intubation
     Route: 041
     Dates: start: 20250611, end: 20250611
  11. NEXIUM [Concomitant]
     Active Substance: ESOMEPRAZOLE MAGNESIUM
     Indication: Antacid therapy
     Dosage: 40.0 MG, 1X/DAY
     Route: 048
     Dates: start: 20250611, end: 20250703
  12. MAGNESIUM OXIDE [Concomitant]
     Active Substance: MAGNESIUM OXIDE
     Indication: Faeces soft
     Dosage: ONCE EVERY 0.25 DAY
     Route: 048
     Dates: start: 20250612, end: 20250715
  13. MAGNESIUM OXIDE [Concomitant]
     Active Substance: MAGNESIUM OXIDE
     Indication: Dyspepsia
  14. ACETAMINOPHEN\TRAMADOL [Concomitant]
     Active Substance: ACETAMINOPHEN\TRAMADOL
     Indication: Pain
     Dosage: ONCE EVERY 0.25 DAY
     Route: 048
     Dates: start: 20250612, end: 20250624
  15. KENTAMIN [Concomitant]
     Indication: Therapeutic procedure
     Dosage: ONCE EVERY 0.25 DAY
     Route: 048
     Dates: start: 20250612, end: 20250624
  16. LEEYO [Concomitant]
     Indication: Therapeutic procedure
     Dosage: 10.0 MG, 1X/DAY
     Route: 048
     Dates: start: 20250612, end: 20250629
  17. TRAZODONE HYDROCHLORIDE [Concomitant]
     Active Substance: TRAZODONE HYDROCHLORIDE
     Indication: Therapeutic procedure
     Dosage: 50.0 MG, 1X/DAY
     Route: 048
     Dates: start: 20250612, end: 20250629
  18. SLEEPIN [NITRAZEPAM] [Concomitant]
     Indication: Therapeutic procedure
     Route: 048
     Dates: start: 20250612, end: 20250714
  19. XYZAL [Concomitant]
     Active Substance: LEVOCETIRIZINE DIHYDROCHLORIDE
     Indication: Antiallergic therapy
     Dosage: 5.0 MG, 1X/DAY
     Route: 048
  20. SENNAPUR [Concomitant]
     Indication: Faeces soft
     Dosage: 12.5 MG, 1X/DAY
     Route: 048
     Dates: start: 20250613, end: 20250627
  21. CEFTRIAXONE SODIUM [Concomitant]
     Active Substance: CEFTRIAXONE SODIUM
     Indication: Encephalitis
     Route: 041
     Dates: start: 20250610, end: 20250610
  22. CEFTRIAXONE SODIUM [Concomitant]
     Active Substance: CEFTRIAXONE SODIUM
     Dosage: 2000 MG, 2X/DAY
     Route: 041
     Dates: start: 20250611, end: 20250611
  23. VANCOMYCIN [Concomitant]
     Active Substance: VANCOMYCIN
     Indication: Encephalitis
     Route: 041
     Dates: start: 20250610
  24. VANCOMYCIN [Concomitant]
     Active Substance: VANCOMYCIN
     Dosage: 1000 MG, 2X/DAY
     Route: 041
     Dates: start: 20250611, end: 20250611
  25. VANCOMYCIN [Concomitant]
     Active Substance: VANCOMYCIN
     Dosage: 1250 MG, 3X/DAY
     Route: 041
     Dates: start: 20250612, end: 20250621
  26. CEFTAZIDIME [Concomitant]
     Active Substance: CEFTAZIDIME
     Indication: Encephalitis
     Dosage: 2000 MG, 3X/DAY
     Dates: start: 20250611, end: 20250621

REACTIONS (6)
  - Hypophosphataemia [Recovered/Resolved]
  - Blood calcium decreased [Recovered/Resolved]
  - Pulmonary function test decreased [Unknown]
  - Hallucination, auditory [Unknown]
  - Metabolic alkalosis [Unknown]
  - Off label use [Unknown]

NARRATIVE: CASE EVENT DATE: 20250611
